FAERS Safety Report 9169226 (Version 1)
Quarter: 2013Q1

REPORT INFORMATION
  Report Type: Spontaneous
  Country: GB (occurrence: GB)
  Receive Date: 20130318
  Receipt Date: 20130318
  Transmission Date: 20140127
  Serious: Yes (Other)
  Sender: FDA-Public Use
  Company Number: GB-ROCHE-716835

PATIENT
  Age: 4 Month
  Sex: Male
  Weight: 7.4 kg

DRUGS (1)
  1. ROCEPHIN [Suspect]
     Indication: INFECTION
     Route: 042

REACTIONS (2)
  - Extravasation [Unknown]
  - Local swelling [Unknown]
